FAERS Safety Report 5261729-9 (Version None)
Quarter: 2007Q1

REPORT INFORMATION
  Report Type: 
  Country: None (occurrence: None)
  Receive Date: 20061208
  Receipt Date: 20060505
  Transmission Date: 20070707
  Serious: No
  Sender: FDA-Public Use
  Company Number: USA-2006-0024173

PATIENT
  Age: 65 Year
  Sex: Female

DRUGS (13)
  1. OXYCONTIN [Suspect]
     Indication: PROCEDURAL PAIN
     Dosage: 20 MG, DAILY
     Dates: start: 20060425, end: 20060101
  2. ASPIRIN [Concomitant]
  3. ISOSORBIDE [Concomitant]
  4. ALBUTEROL [Concomitant]
  5. IPRATROPIUM BROMIDE [Concomitant]
  6. PULMICORT [Concomitant]
  7. RHINOCORT [Concomitant]
  8. ALLEGRA [Concomitant]
  9. BUMEX [Concomitant]
  10. SPIRONOLACTONE [Concomitant]
  11. DILTIAZEM [Concomitant]
  12. NEURONTIN [Concomitant]
  13. CORTISONE [Concomitant]

REACTIONS (6)
  - BLOOD PRESSURE DECREASED [None]
  - DIARRHOEA [None]
  - DIZZINESS [None]
  - HYPERHIDROSIS [None]
  - MEDICAL DEVICE COMPLICATION [None]
  - TREMOR [None]
